FAERS Safety Report 9842456 (Version 1)
Quarter: 2014Q1

REPORT INFORMATION
  Report Type: Spontaneous
  Country: US (occurrence: US)
  Receive Date: 20140124
  Receipt Date: 20140124
  Transmission Date: 20141002
  Serious: No
  Sender: FDA-Public Use
  Company Number: US-GILEAD-2011-0040831

PATIENT
  Age: 57 Year
  Sex: Male

DRUGS (6)
  1. RANEXA [Suspect]
     Indication: PRODUCT USED FOR UNKNOWN INDICATION
     Dates: start: 20110610
  2. CARTIA [Concomitant]
  3. CRESTOR [Concomitant]
  4. EFFIENT [Concomitant]
  5. NEXIUM [Concomitant]
  6. GLUCOPHAGE [Concomitant]

REACTIONS (2)
  - Urticaria [Unknown]
  - Rash [Unknown]
